FAERS Safety Report 22356903 (Version 1)
Quarter: 2023Q2

REPORT INFORMATION
  Report Type: Spontaneous
  Country: JP (occurrence: JP)
  Receive Date: 20230523
  Receipt Date: 20230523
  Transmission Date: 20230722
  Serious: Yes (Other)
  Sender: FDA-Public Use
  Company Number: JP-002147023-NVSJ2023JP002238

PATIENT
  Age: 80 Year
  Sex: Female

DRUGS (1)
  1. BEOVU [Suspect]
     Active Substance: BROLUCIZUMAB-DBLL
     Indication: Age-related macular degeneration
     Dosage: 6 MG
     Route: 031
     Dates: start: 20221124, end: 20221124

REACTIONS (9)
  - Retinal artery occlusion [Recovered/Resolved with Sequelae]
  - Blindness transient [Unknown]
  - Retinal oedema [Unknown]
  - Retinal exudates [Unknown]
  - Visual acuity reduced [Unknown]
  - Retinal vasculitis [Recovered/Resolved with Sequelae]
  - Visual field defect [Unknown]
  - Non-infectious endophthalmitis [Recovering/Resolving]
  - Vitreous opacities [Unknown]

NARRATIVE: CASE EVENT DATE: 20230114
